FAERS Safety Report 17581052 (Version 1)
Quarter: 2020Q1

REPORT INFORMATION
  Report Type: Spontaneous
  Country: US (occurrence: US)
  Receive Date: 20200325
  Receipt Date: 20200325
  Transmission Date: 20200409
  Serious: No
  Sender: FDA-Public Use
  Company Number: NVSC2020US081680

PATIENT
  Sex: Female

DRUGS (1)
  1. GLATOPA [Suspect]
     Active Substance: GLATIRAMER ACETATE
     Indication: MULTIPLE SCLEROSIS
     Dosage: 1 ML, Q3W
     Route: 058

REACTIONS (4)
  - Bacterial vaginosis [Unknown]
  - Candida infection [Unknown]
  - Malaise [Unknown]
  - Sexually transmitted disease [Unknown]
